FAERS Safety Report 15557913 (Version 2)
Quarter: 2018Q4

REPORT INFORMATION
  Report Type: Spontaneous
  Country: JP (occurrence: JP)
  Receive Date: 20181027
  Receipt Date: 20181224
  Transmission Date: 20190205
  Serious: Yes (Hospitalization, Other)
  Sender: FDA-Public Use
  Company Number: JP-009507513-1810JPN002428J

PATIENT
  Age: 71 Year
  Sex: Female
  Weight: 50 kg

DRUGS (4)
  1. SELTOUCH [Concomitant]
     Active Substance: FELBINAC
     Indication: PAIN IN EXTREMITY
     Dosage: 1 DOSAGE FORM, BID
     Route: 003
     Dates: start: 20180911
  2. KEYTRUDA [Suspect]
     Active Substance: PEMBROLIZUMAB
     Indication: TRANSITIONAL CELL CARCINOMA
     Dosage: 200 MILLIGRAM, Q3W
     Route: 041
     Dates: start: 20180727, end: 20180918
  3. TAPROS [Concomitant]
     Indication: GLAUCOMA
     Dosage: UNK UNK, QD
     Route: 047
  4. CALONAL [Concomitant]
     Active Substance: ACETAMINOPHEN
     Indication: PAIN IN EXTREMITY
     Dosage: 3 DOSAGE FORM
     Route: 048
     Dates: start: 20181001

REACTIONS (2)
  - Pulmonary embolism [Recovering/Resolving]
  - Deep vein thrombosis [Recovering/Resolving]

NARRATIVE: CASE EVENT DATE: 20181001
